FAERS Safety Report 7497054-5 (Version None)
Quarter: 2011Q2

REPORT INFORMATION
  Report Type: 
  Country: None (occurrence: None)
  Receive Date: 20110523
  Receipt Date: 20110512
  Transmission Date: 20111010
  Serious: Yes (Hospitalization, Other)
  Sender: FDA-Public Use
  Company Number: CN-ASTRAZENECA-2011SE27027

PATIENT
  Age: 24 Year
  Sex: Female

DRUGS (2)
  1. GS [Concomitant]
     Route: 037
  2. ROPIVACAINE HYDROCHLORIDE [Suspect]
     Indication: SPINAL ANAESTHESIA
     Route: 037

REACTIONS (6)
  - PELVIC FLOOR MUSCLE WEAKNESS [None]
  - HYPOAESTHESIA [None]
  - INCONTINENCE [None]
  - URINARY RETENTION [None]
  - TREMOR [None]
  - GAIT DISTURBANCE [None]
